FAERS Safety Report 16199959 (Version 4)
Quarter: 2019Q2

REPORT INFORMATION
  Report Type: Report from Study
  Country: CA (occurrence: CA)
  Receive Date: 20190415
  Receipt Date: 20190612
  Transmission Date: 20190711
  Serious: Yes (Other)
  Sender: FDA-Public Use
  Company Number: PHHY2018CA009158

PATIENT
  Age: 69 Year
  Sex: Female

DRUGS (10)
  1. METHOTREXATE. [Concomitant]
     Active Substance: METHOTREXATE
     Indication: PRODUCT USED FOR UNKNOWN INDICATION
     Route: 065
  2. ENBREL [Concomitant]
     Active Substance: ETANERCEPT
     Indication: PRODUCT USED FOR UNKNOWN INDICATION
     Route: 065
  3. COSENTYX [Suspect]
     Active Substance: SECUKINUMAB
     Dosage: 300 MG, UNK
     Route: 058
     Dates: start: 20180503
  4. COSENTYX [Suspect]
     Active Substance: SECUKINUMAB
     Dosage: 300 MG, QMO
     Route: 058
     Dates: start: 20180703
  5. COSENTYX [Suspect]
     Active Substance: SECUKINUMAB
     Dosage: 300 MG, QMO
     Route: 058
     Dates: end: 20190403
  6. CYMBALTA [Suspect]
     Active Substance: DULOXETINE HYDROCHLORIDE
     Indication: PRODUCT USED FOR UNKNOWN INDICATION
     Route: 065
  7. PLAQUENIL [Concomitant]
     Active Substance: HYDROXYCHLOROQUINE SULFATE
     Indication: PRODUCT USED FOR UNKNOWN INDICATION
     Route: 065
  8. COSENTYX [Suspect]
     Active Substance: SECUKINUMAB
     Dosage: 300 MG, QMO
     Route: 058
     Dates: start: 20180603
  9. LEFLUNOMIDE. [Concomitant]
     Active Substance: LEFLUNOMIDE
     Indication: PRODUCT USED FOR UNKNOWN INDICATION
     Route: 065
  10. COSENTYX [Suspect]
     Active Substance: SECUKINUMAB
     Indication: PSORIATIC ARTHROPATHY
     Dosage: 300 MG, QMO
     Route: 058
     Dates: start: 20180405

REACTIONS (26)
  - Back pain [Not Recovered/Not Resolved]
  - Back disorder [Unknown]
  - Inflammation [Unknown]
  - Musculoskeletal chest pain [Not Recovered/Not Resolved]
  - Feeling abnormal [Unknown]
  - Pain in extremity [Unknown]
  - Burning sensation [Unknown]
  - Pain [Unknown]
  - Arthralgia [Unknown]
  - Nausea [Unknown]
  - Pelvic pain [Not Recovered/Not Resolved]
  - Abdominal discomfort [Unknown]
  - Spinal fracture [Unknown]
  - Sleep disorder due to a general medical condition [Unknown]
  - Gait disturbance [Unknown]
  - Concomitant disease aggravated [Unknown]
  - Drug ineffective [Unknown]
  - Fatigue [Unknown]
  - Headache [Unknown]
  - Asthenia [Unknown]
  - Stress [Unknown]
  - Sleep disorder [Unknown]
  - Musculoskeletal pain [Unknown]
  - Insomnia [Unknown]
  - Alopecia [Unknown]
  - Arthritis [Unknown]

NARRATIVE: CASE EVENT DATE: 201804
